FAERS Safety Report 20711934 (Version 1)
Quarter: 2022Q2

REPORT INFORMATION
  Report Type: Report from Study
  Country: US (occurrence: US)
  Receive Date: 20220414
  Receipt Date: 20220414
  Transmission Date: 20220721
  Serious: No
  Sender: FDA-Public Use
  Company Number: US-KYOWAKIRIN-2022BKK005169

PATIENT

DRUGS (1)
  1. GRANISETRON [Suspect]
     Active Substance: GRANISETRON
     Indication: Prophylaxis of nausea and vomiting
     Dosage: UNK
     Route: 065
     Dates: start: 202201, end: 202203

REACTIONS (3)
  - Dizziness [Recovering/Resolving]
  - Nausea [Recovering/Resolving]
  - Decreased activity [Recovering/Resolving]

NARRATIVE: CASE EVENT DATE: 20220101
